FAERS Safety Report 14747540 (Version 1)
Quarter: 2018Q2

REPORT INFORMATION
  Report Type: Spontaneous
  Country: US (occurrence: US)
  Receive Date: 20180411
  Receipt Date: 20180411
  Transmission Date: 20180711
  Serious: Yes (Life-Threatening, Hospitalization, Other)
  Sender: FDA-Public Use
  Company Number: US-BAYER-200419283BWH

PATIENT
  Age: 64 Year
  Sex: Female
  Weight: 100 kg

DRUGS (11)
  1. LOPRESSOR [Concomitant]
     Active Substance: METOPROLOL TARTRATE
     Indication: ATRIAL FIBRILLATION
     Dosage: 50 MG (DAILY DOSE), QD, ORAL
     Route: 048
  2. LOPRESSOR [Concomitant]
     Active Substance: METOPROLOL TARTRATE
     Indication: ATRIAL FIBRILLATION
     Dosage: UNK
  3. COUMADIN [Concomitant]
     Active Substance: WARFARIN SODIUM
     Dosage: UNK
  4. URSODIOL. [Concomitant]
     Active Substance: URSODIOL
     Indication: PRIMARY BILIARY CHOLANGITIS
     Dosage: UNK UNK, UNK
     Route: 048
  5. AVELOX [Suspect]
     Active Substance: MOXIFLOXACIN HYDROCHLORIDE
     Indication: CELLULITIS
     Dosage: UNK
     Route: 042
  6. AVELOX [Suspect]
     Active Substance: MOXIFLOXACIN HYDROCHLORIDE
     Indication: PNEUMONIA
     Dosage: 400 MG, QD
     Route: 042
  7. LEVAQUIN [Concomitant]
     Active Substance: LEVOFLOXACIN
     Indication: CELLULITIS
     Dosage: 500 MG (DAILY DOSE), QD, ORAL
     Route: 048
  8. COUMADIN [Concomitant]
     Active Substance: WARFARIN SODIUM
     Dosage: 5 MG (DAILY DOSE), , ORAL
     Route: 048
  9. DIGITEK [Concomitant]
     Active Substance: DIGOXIN
     Dosage: 0.25 MG (DAILY DOSE), QD, ORAL
     Route: 048
  10. AVELOX [Suspect]
     Active Substance: MOXIFLOXACIN HYDROCHLORIDE
     Indication: THROMBOPHLEBITIS
     Dosage: DAILY DOSE 400 MG
     Route: 042
  11. COUMADIN [Concomitant]
     Active Substance: WARFARIN SODIUM
     Dosage: 2.5 MG (DAILY DOSE), , ORAL
     Route: 048

REACTIONS (8)
  - Blood potassium decreased [None]
  - Ventricular fibrillation [Recovered/Resolved]
  - Seizure [Recovered/Resolved]
  - Blood magnesium decreased [None]
  - Torsade de pointes [Recovered/Resolved]
  - Cardiac arrest [Recovered/Resolved]
  - Blood bilirubin increased [Recovered/Resolved]
  - Blood alkaline phosphatase increased [None]

NARRATIVE: CASE EVENT DATE: 200404
